FAERS Safety Report 8384377-0 (Version None)
Quarter: 2012Q2

REPORT INFORMATION
  Report Type: 
  Country: None (occurrence: None)
  Receive Date: 20120524
  Receipt Date: 20120517
  Transmission Date: 20120825
  Serious: Yes (Hospitalization)
  Sender: FDA-Public Use
  Company Number: US-GLAXOSMITHKLINE-A0816141A

PATIENT
  Age: 59 Year
  Sex: Female
  Weight: 52.7 kg

DRUGS (8)
  1. METFORMIN HCL [Concomitant]
  2. AVANDAMET [Suspect]
     Indication: DIABETES MELLITUS
     Route: 048
     Dates: start: 20040816, end: 20060109
  3. NAMENDA [Concomitant]
  4. GLIPIZIDE [Concomitant]
  5. AMLODIPINE BESYLATE [Concomitant]
  6. AVANDIA [Suspect]
     Indication: DIABETES MELLITUS
     Dosage: 4MG TWICE PER DAY
     Route: 048
     Dates: start: 20040101, end: 20080101
  7. FOSAMAX [Concomitant]
  8. FOSAMAX [Concomitant]

REACTIONS (2)
  - TRANSIENT ISCHAEMIC ATTACK [None]
  - CARDIAC FAILURE CONGESTIVE [None]
